FAERS Safety Report 18976103 (Version 1)
Quarter: 2021Q1

REPORT INFORMATION
  Report Type: Spontaneous
  Country: FR (occurrence: FR)
  Receive Date: 20210305
  Receipt Date: 20210305
  Transmission Date: 20210420
  Serious: Yes (Other)
  Sender: FDA-Public Use
  Company Number: FR-TEVA-2021-FR-1886564

PATIENT
  Age: 82 Year
  Sex: Male

DRUGS (4)
  1. PARACETAMOL [Concomitant]
     Active Substance: ACETAMINOPHEN
     Indication: PAIN
     Dosage: 1 GRAM
     Route: 048
     Dates: start: 20201022
  2. UROREC [Concomitant]
     Active Substance: SILODOSIN
     Dosage: 40 MG
     Route: 048
     Dates: start: 20201008
  3. AMOXICILLINE BASE [Suspect]
     Active Substance: AMOXICILLIN
     Indication: ANTIBIOTIC THERAPY
     Dosage: 2 GRAM
     Route: 048
     Dates: start: 20201022
  4. IMUREL [Concomitant]
     Active Substance: AZATHIOPRINE SODIUM
     Dosage: 150 MG
     Route: 048
     Dates: start: 20181118

REACTIONS (1)
  - Angioedema [Recovered/Resolved]

NARRATIVE: CASE EVENT DATE: 20201023
